FAERS Safety Report 20002882 (Version 1)
Quarter: 2021Q4

REPORT INFORMATION
  Report Type: Report from Study
  Country: None (occurrence: US)
  Receive Date: 20211028
  Receipt Date: 20211028
  Transmission Date: 20220303
  Serious: Yes (Other)
  Sender: FDA-Public Use
  Company Number: US-ABBVIE-20K-163-3328573-00

PATIENT
  Age: 74 Year
  Sex: Male

DRUGS (1)
  1. VENCLEXTA [Suspect]
     Active Substance: VENETOCLAX
     Indication: Mantle cell lymphoma
     Dosage: 4 TABLET(S) BY MOUTH DAILY WITH MEALS AND WATER AT APPROXIMATELY THE SAME TIME EACH DAY
     Route: 048

REACTIONS (5)
  - Hospice care [Unknown]
  - Full blood count abnormal [Unknown]
  - Off label use [Unknown]
  - Immunodeficiency [Unknown]
  - Malaise [Unknown]

NARRATIVE: CASE EVENT DATE: 20200301
